FAERS Safety Report 12195369 (Version 1)
Quarter: 2016Q1

REPORT INFORMATION
  Report Type: Report from Study
  Country: CA (occurrence: CA)
  Receive Date: 20160321
  Receipt Date: 20160321
  Transmission Date: 20160526
  Serious: Yes (Hospitalization, Other)
  Sender: FDA-Public Use
  Company Number: CA-BAYER-2015-042215

PATIENT
  Age: 65 Year
  Sex: Female

DRUGS (4)
  1. ADEMPAS [Suspect]
     Active Substance: RIOCIGUAT
     Indication: PULMONARY HYPERTENSION
     Dosage: UNK
     Dates: start: 20131101
  2. TRACLEER [Concomitant]
     Active Substance: BOSENTAN
  3. ASA [Concomitant]
     Active Substance: ASPIRIN
  4. ADEMPAS [Suspect]
     Active Substance: RIOCIGUAT
     Indication: PULMONARY HYPERTENSION
     Dosage: 2.5 MG, TID
     Route: 048

REACTIONS (11)
  - Fall [Not Recovered/Not Resolved]
  - Hyperparathyroidism [Not Recovered/Not Resolved]
  - Drug dose omission [None]
  - Drug dose omission [Recovered/Resolved]
  - Cerebral haemorrhage [Not Recovered/Not Resolved]
  - Head injury [Not Recovered/Not Resolved]
  - Drug dose omission [Recovered/Resolved]
  - Cough [Not Recovered/Not Resolved]
  - Hospitalisation [Not Recovered/Not Resolved]
  - Fatigue [Not Recovered/Not Resolved]
  - Loss of consciousness [Not Recovered/Not Resolved]

NARRATIVE: CASE EVENT DATE: 20150303
